FAERS Safety Report 11359050 (Version 1)
Quarter: 2015Q3

REPORT INFORMATION
  Report Type: Report from Study
  Country: FR (occurrence: FR)
  Receive Date: 20150807
  Receipt Date: 20150807
  Transmission Date: 20151125
  Serious: Yes (Hospitalization)
  Sender: FDA-Public Use
  Company Number: FR-GLAXOSMITHKLINE-FR2015GSK113227

PATIENT
  Age: 53 Year
  Sex: Female

DRUGS (6)
  1. OMEGA-3-ACID ETHYL ESTERS. [Suspect]
     Active Substance: OMEGA-3-ACID ETHYL ESTERS
     Indication: ISCHAEMIC HEART DISEASE PROPHYLAXIS
     Dosage: UNK
     Dates: start: 20081031, end: 20101012
  2. COVERSYL [Concomitant]
     Active Substance: PERINDOPRIL
  3. KARDEGIC [Concomitant]
     Active Substance: ASPIRIN LYSINE
  4. PLAVIX [Concomitant]
     Active Substance: CLOPIDOGREL BISULFATE
  5. TAHOR [Concomitant]
     Active Substance: ATORVASTATIN CALCIUM
  6. CARDENSIEL [Concomitant]
     Active Substance: BISOPROLOL FUMARATE

REACTIONS (2)
  - Vascular occlusion [Unknown]
  - Arteriogram coronary [Unknown]

NARRATIVE: CASE EVENT DATE: 20091220
